FAERS Safety Report 5602041-5 (Version None)
Quarter: 2008Q1

REPORT INFORMATION
  Report Type: 
  Country: None (occurrence: None)
  Receive Date: 20080122
  Receipt Date: 20080122
  Transmission Date: 20080703
  Serious: No
  Sender: FDA-Public Use
  Company Number: None

PATIENT
  Age: 51 Year
  Sex: Male
  Weight: 74.3899 kg

DRUGS (1)
  1. PHENYTOIN [Suspect]
     Dosage: 200 MG BID PO
     Route: 048

REACTIONS (2)
  - ADVERSE REACTION [None]
  - ANTICONVULSANT DRUG LEVEL INCREASED [None]
